FAERS Safety Report 9532929 (Version 1)
Quarter: 2013Q3

REPORT INFORMATION
  Report Type: Report from Study
  Country: US (occurrence: US)
  Receive Date: 20130918
  Receipt Date: 20130918
  Transmission Date: 20140515
  Serious: Yes (Hospitalization)
  Sender: FDA-Public Use
  Company Number: US-TEVA-432436USA

PATIENT
  Sex: Male

DRUGS (2)
  1. CLOZAPINE [Suspect]
     Indication: PSYCHOTIC DISORDER
     Route: 048
  2. CLOZAPINE [Suspect]
     Indication: IMPULSE-CONTROL DISORDER

REACTIONS (2)
  - Drug ineffective [Unknown]
  - Laboratory test abnormal [Unknown]
